FAERS Safety Report 16535603 (Version 4)
Quarter: 2020Q3

REPORT INFORMATION
  Report Type: Spontaneous
  Country: US (occurrence: US)
  Receive Date: 20190705
  Receipt Date: 20200929
  Transmission Date: 20201102
  Serious: No
  Sender: FDA-Public Use
  Company Number: US-PFIZER INC-2019197190

PATIENT
  Age: 67 Year
  Sex: Female
  Weight: 99.77 kg

DRUGS (29)
  1. XELJANZ [Suspect]
     Active Substance: TOFACITINIB CITRATE
     Indication: RHEUMATOID ARTHRITIS
     Dosage: 10 MG, DAILY
     Dates: start: 20181011
  2. FLAVOXATE [Concomitant]
     Active Substance: FLAVOXATE
     Dosage: 100 MG, AS NEEDED THREE TIMES A DAY
  3. METOPROLOL TARTRATE. [Concomitant]
     Active Substance: METOPROLOL TARTRATE
     Indication: HYPERTENSION
     Dosage: 75 MG, ONCE A DAY (ONE AND A HALF OF 50 MG TABLET AT BEDTIME)
  4. XELJANZ [Suspect]
     Active Substance: TOFACITINIB CITRATE
     Dosage: 5 MG, 2X/DAY
     Dates: start: 20200923
  5. VOLTAREN [Concomitant]
     Active Substance: DICLOFENAC SODIUM
     Dosage: UNK, AS NEEDED (FOUR TIMES A DAY AS NEEDED)
  6. VITAMIN D3 [Concomitant]
     Active Substance: CHOLECALCIFEROL
     Dosage: 1000 IU, ONCE A DAY (IN THE MORNING)
  7. ZYPREXA [Concomitant]
     Active Substance: OLANZAPINE
     Indication: BIPOLAR DISORDER
     Dosage: 7.5 MG, ONCE A DAY (AT BEDTIME)
  8. ZYPREXA [Concomitant]
     Active Substance: OLANZAPINE
     Dosage: 5 MG, 1X/DAY (5MG TABLET ONE TABLET DAILY)
  9. FLECAINIDE [Concomitant]
     Active Substance: FLECAINIDE
     Dosage: 50 MG, 2X/DAY (50MG TABLET, ONE TABLET TWICE A DAY)
  10. LISINOPRIL. [Concomitant]
     Active Substance: LISINOPRIL
     Dosage: 5 MG, ONCE A DAY (IN THE MORNING)
  11. NAPROXEN. [Concomitant]
     Active Substance: NAPROXEN
     Dosage: 220 MG, TWICE A DAY (MORNING AND BEDTIME)
  12. PREMARIN [Concomitant]
     Active Substance: ESTROGENS, CONJUGATED
     Dosage: 0.9 MG, ONCE A DAY (IN THE MORNING)
  13. ESTRADIOL. [Concomitant]
     Active Substance: ESTRADIOL
     Dosage: 1 MG, 2X/DAY (1MG TABLET TWICE A DAY)
  14. EUTHYROX [Concomitant]
     Active Substance: LEVOTHYROXINE SODIUM
     Indication: HYPOTHYROIDISM
     Dosage: 100 UG, 1X/DAY (100MCG ONE TABLET DAILY)
  15. BENADRYL [Concomitant]
     Active Substance: DIPHENHYDRAMINE HYDROCHLORIDE
     Dosage: 50 MG, AS NEEDED
  16. LEVOTHYROXINE. [Concomitant]
     Active Substance: LEVOTHYROXINE
     Dosage: 75 UG, ONCE A DAY (IN THE MORNING)
  17. FLECAINIDE [Concomitant]
     Active Substance: FLECAINIDE
     Indication: ATRIAL FIBRILLATION
     Dosage: 100 MG, TWICE A DAY (MORNING AND BEDTIME)
  18. MUPIROCIN. [Concomitant]
     Active Substance: MUPIROCIN
     Dosage: UNK, TWICE A DAY (MORNING AND BEDTIME)
  19. PREDNISONE. [Concomitant]
     Active Substance: PREDNISONE
     Indication: RHEUMATOID ARTHRITIS
     Dosage: UNK, 1X/DAY (ONE TO FIVE 1 MG TABLETS IN THE MORNING)
  20. ATACAND [Concomitant]
     Active Substance: CANDESARTAN CILEXETIL
     Indication: HYPERTENSION
     Dosage: 8 MG, 1X/DAY (8MG TABLET ONCE A DAY)
  21. NAPROSYN [Concomitant]
     Active Substance: NAPROXEN
     Indication: RHEUMATOID ARTHRITIS
  22. TOPAMAX [Concomitant]
     Active Substance: TOPIRAMATE
     Indication: FOOD CRAVING
     Dosage: 50 MG, 1X/DAY (50MG TABLET ONE TABLET DAILY)
  23. PREDNISONE. [Concomitant]
     Active Substance: PREDNISONE
     Dosage: 5 MG, DAILY (5MG TABLET DAILY)
  24. TYLENOL [Concomitant]
     Active Substance: ACETAMINOPHEN
     Indication: RHEUMATOID ARTHRITIS
     Dosage: 1000 MG, TWICE A DAY (TWO 500 MG TABLETS IN THE MORNING AND AT BEDTIME)
  25. TYLENOL [Concomitant]
     Active Substance: ACETAMINOPHEN
     Dosage: 500 MG, 3X/DAY (500MG TABLETS THREE TIMES A DAY)
  26. VITAMIN B12 [Concomitant]
     Active Substance: CYANOCOBALAMIN
     Dosage: 1000 UG, ONCE A DAY (IN THE MORNING)
  27. XELJANZ [Suspect]
     Active Substance: TOFACITINIB CITRATE
     Dosage: 5 MG, DAILY
  28. ALBUTEROL [SALBUTAMOL] [Concomitant]
     Active Substance: ALBUTEROL
     Indication: ASTHMA
     Dosage: 90 UG, AS NEEDED (90 MCG PER ACTUATION AS NEEDED)
     Route: 055
  29. NAPROSYN [Concomitant]
     Active Substance: NAPROXEN
     Indication: INFLAMMATION
     Dosage: 220 MG, 2X/DAY (220MG ONE TABLET TWICE A DAY)

REACTIONS (1)
  - Fungal skin infection [Recovered/Resolved]

NARRATIVE: CASE EVENT DATE: 20190115
